FAERS Safety Report 15170268 (Version 3)
Quarter: 2019Q1

REPORT INFORMATION
  Report Type: Report from Study
  Country: CL (occurrence: CL)
  Receive Date: 20180720
  Receipt Date: 20190326
  Transmission Date: 20190417
  Serious: Yes (Hospitalization)
  Sender: FDA-Public Use
  Company Number: CL-EMD SERONO-E2B_90051712

PATIENT
  Age: 34 Year
  Sex: Female

DRUGS (1)
  1. REBIF [Suspect]
     Active Substance: INTERFERON BETA-1A
     Indication: RELAPSING-REMITTING MULTIPLE SCLEROSIS
     Route: 058
     Dates: start: 20171212

REACTIONS (2)
  - Haematuria [Not Recovered/Not Resolved]
  - Transfusion reaction [Unknown]

NARRATIVE: CASE EVENT DATE: 201712
